FAERS Safety Report 6860614-6 (Version None)
Quarter: 2010Q3

REPORT INFORMATION
  Report Type: 
  Country: None (occurrence: None)
  Receive Date: 20100720
  Receipt Date: 20100708
  Transmission Date: 20110219
  Serious: Yes (Other)
  Sender: FDA-Public Use
  Company Number: BR-ROCHE-715688

PATIENT
  Age: 23 Year
  Sex: Female
  Weight: 50 kg

DRUGS (2)
  1. ROACUTAN [Suspect]
     Indication: ACNE
     Route: 065
     Dates: start: 20061108, end: 20070101
  2. DEPO-PROVERA [Concomitant]
     Indication: CONTRACEPTION

REACTIONS (26)
  - ACNE [None]
  - ACTIVITIES OF DAILY LIVING IMPAIRED [None]
  - ALOPECIA [None]
  - BLOOD CHOLESTEROL INCREASED [None]
  - DRY EYE [None]
  - EPISTAXIS [None]
  - FALL [None]
  - FIBROMYALGIA [None]
  - HALLUCINATION [None]
  - HEADACHE [None]
  - HYPERAESTHESIA [None]
  - ILL-DEFINED DISORDER [None]
  - JOINT INJURY [None]
  - LABORATORY TEST ABNORMAL [None]
  - LIMB INJURY [None]
  - LIP DRY [None]
  - NASAL DRYNESS [None]
  - NEURALGIA [None]
  - ONYCHOCLASIS [None]
  - SCAR [None]
  - SKIN ATROPHY [None]
  - SKIN DISCOLOURATION [None]
  - SKIN EXFOLIATION [None]
  - SKIN INJURY [None]
  - SKIN IRRITATION [None]
  - URTICARIA [None]
